FAERS Safety Report 25214311 (Version 7)
Quarter: 2025Q4

REPORT INFORMATION
  Report Type: Report from Study
  Country: JP (occurrence: JP)
  Receive Date: 20250418
  Receipt Date: 20251119
  Transmission Date: 20260118
  Serious: Yes (Hospitalization, Other)
  Sender: ABBVIE
  Company Number: JP-ABBVIE-6185585

PATIENT
  Age: 73 Year
  Sex: Female

DRUGS (4)
  1. VYALEV [Suspect]
     Active Substance: FOSCARBIDOPA\FOSLEVODOPA
     Indication: Parkinson^s disease
     Dosage: STOP DATE 2025
     Route: 058
     Dates: start: 20250303
  2. VYALEV [Suspect]
     Active Substance: FOSCARBIDOPA\FOSLEVODOPA
     Dosage: LARGER: 0.28, STANDARD: 0.27, SMALLER: 0.26 FIRST ADMIN DATE: 2025
     Route: 058
  3. VYALEV [Suspect]
     Active Substance: FOSCARBIDOPA\FOSLEVODOPA
     Dosage: 6.72 ML/DAY
     Route: 058
     Dates: start: 2025, end: 2025
  4. CARBIDOPA AND LEVODOPA [Concomitant]
     Active Substance: CARBIDOPA\LEVODOPA
     Indication: Parkinson^s disease
     Dosage: FREQUENCY: 3 TO 5 TIMES PER DAY
     Route: 048

REACTIONS (17)
  - Hospitalisation [Not Recovered/Not Resolved]
  - Infusion site discharge [Unknown]
  - Infusion site reaction [Unknown]
  - Mobility decreased [Unknown]
  - Malaise [Unknown]
  - Somnolence [Unknown]
  - Infusion site mass [Recovered/Resolved]
  - Blood pressure increased [Recovered/Resolved]
  - Infusion site mass [Not Recovered/Not Resolved]
  - Seizure [Unknown]
  - Blood pressure decreased [Recovered/Resolved]
  - Fatigue [Unknown]
  - Infusion site induration [Unknown]
  - Weight decreased [Unknown]
  - Hallucination [Unknown]
  - Dyspnoea [Unknown]
  - Infusion site mass [Unknown]

NARRATIVE: CASE EVENT DATE: 20250101
